FAERS Safety Report 24840623 (Version 1)
Quarter: 2025Q1

REPORT INFORMATION
  Report Type: Report from Study
  Country: US (occurrence: US)
  Receive Date: 20250114
  Receipt Date: 20250114
  Transmission Date: 20250409
  Serious: Yes (Hospitalization)
  Sender: RECORDATI
  Company Number: US-ORPHANEU-2024003744

PATIENT

DRUGS (32)
  1. ISTURISA [Suspect]
     Active Substance: OSILODROSTAT PHOSPHATE
     Indication: Pituitary-dependent Cushing^s syndrome
     Dosage: 3 MG, BID
     Route: 048
     Dates: start: 20240213, end: 202402
  2. ISTURISA [Suspect]
     Active Substance: OSILODROSTAT PHOSPHATE
     Dosage: 1 MG, BID (1 MG IN THE MORNING AND 1 MG AT NIGHT)
     Route: 048
     Dates: start: 20240220, end: 2024
  3. ISTURISA [Suspect]
     Active Substance: OSILODROSTAT PHOSPHATE
     Dosage: 1 MG, BID
     Route: 048
     Dates: start: 20240314, end: 20240314
  4. ISTURISA [Suspect]
     Active Substance: OSILODROSTAT PHOSPHATE
     Dosage: 3 MG, QD
     Route: 048
     Dates: start: 2024, end: 20240425
  5. ISTURISA [Suspect]
     Active Substance: OSILODROSTAT PHOSPHATE
     Dosage: 2 MG, BID
     Route: 048
     Dates: start: 20240426, end: 20240426
  6. ISTURISA [Suspect]
     Active Substance: OSILODROSTAT PHOSPHATE
     Dosage: 2 MG, BID (2 MG IN THE MORNING AND 2 MG AT NIGHT)
     Route: 048
     Dates: start: 202405, end: 202405
  7. ISTURISA [Suspect]
     Active Substance: OSILODROSTAT PHOSPHATE
     Route: 048
     Dates: start: 20240520, end: 202405
  8. ISTURISA [Suspect]
     Active Substance: OSILODROSTAT PHOSPHATE
     Dosage: 2 MG, BID
     Route: 048
     Dates: start: 202405, end: 20240521
  9. ISTURISA [Suspect]
     Active Substance: OSILODROSTAT PHOSPHATE
     Dosage: 2 MG, BID
     Route: 048
     Dates: start: 2024, end: 20240610
  10. ISTURISA [Suspect]
     Active Substance: OSILODROSTAT PHOSPHATE
     Route: 048
     Dates: start: 202406, end: 20240611
  11. ISTURISA [Suspect]
     Active Substance: OSILODROSTAT PHOSPHATE
     Route: 048
     Dates: start: 2024, end: 20240703
  12. ISTURISA [Suspect]
     Active Substance: OSILODROSTAT PHOSPHATE
     Route: 048
     Dates: start: 202407, end: 20240705
  13. ISTURISA [Suspect]
     Active Substance: OSILODROSTAT PHOSPHATE
     Route: 048
     Dates: start: 202407, end: 20240709
  14. ISTURISA [Suspect]
     Active Substance: OSILODROSTAT PHOSPHATE
     Route: 048
     Dates: start: 2024, end: 20240812
  15. ISTURISA [Suspect]
     Active Substance: OSILODROSTAT PHOSPHATE
     Dosage: 4 MG, BID
     Route: 048
     Dates: start: 2024, end: 20240927
  16. ISTURISA [Suspect]
     Active Substance: OSILODROSTAT PHOSPHATE
     Dosage: 5 MG, BID (5MG TABLET)
     Route: 048
     Dates: start: 2024, end: 20241025
  17. ISTURISA [Suspect]
     Active Substance: OSILODROSTAT PHOSPHATE
     Dosage: 5 MG AM AND 4 MG PM, BID (5 MG TABLET)
     Route: 048
     Dates: start: 20241025, end: 20241113
  18. ISTURISA [Suspect]
     Active Substance: OSILODROSTAT PHOSPHATE
     Route: 048
     Dates: start: 2024, end: 2024
  19. ISTURISA [Suspect]
     Active Substance: OSILODROSTAT PHOSPHATE
     Dosage: 5 MG, BID
     Route: 048
     Dates: start: 2024, end: 20241206
  20. ISTURISA [Suspect]
     Active Substance: OSILODROSTAT PHOSPHATE
     Dosage: 5 MG AM AND 4 MG PM, BID (1 MG TABLET)
     Route: 048
     Dates: start: 202412, end: 202412
  21. ISTURISA [Suspect]
     Active Substance: OSILODROSTAT PHOSPHATE
     Dosage: 5 MG AM AND 4 MG PM, BID(5 MG TABLET)
     Route: 048
     Dates: start: 202412, end: 202412
  22. ISTURISA [Suspect]
     Active Substance: OSILODROSTAT PHOSPHATE
     Dosage: 2 MG, BID
     Dates: start: 202412
  23. DESMOPRESSIN ACETATE [Concomitant]
     Active Substance: DESMOPRESSIN ACETATE
     Indication: Diabetes insipidus
     Dosage: 0.2 MILLIGRAM, QD
     Dates: start: 20230209, end: 20230901
  24. DESMOPRESSIN ACETATE [Concomitant]
     Active Substance: DESMOPRESSIN ACETATE
     Route: 048
     Dates: start: 20230901
  25. ALBUTEROL SULFATE [Concomitant]
     Active Substance: ALBUTEROL SULFATE
     Indication: Product used for unknown indication
     Dates: start: 20240710
  26. VITAMINS [Concomitant]
     Active Substance: VITAMINS
     Indication: Product used for unknown indication
     Dosage: 28-0.8 MG, QD, TABLET
     Route: 048
     Dates: start: 20240401
  27. ASPIRIN [Concomitant]
     Active Substance: ASPIRIN
     Indication: Product used for unknown indication
     Dosage: 81 MG, QD, TABLET
     Route: 048
     Dates: start: 20240812
  28. BENZONATATE [Concomitant]
     Active Substance: BENZONATATE
     Indication: Product used for unknown indication
     Dosage: 200 MG, BID (CAPSULE)
     Route: 048
     Dates: start: 20240622, end: 20240701
  29. MONISTAT [Concomitant]
     Active Substance: MICONAZOLE NITRATE
     Indication: Product used for unknown indication
     Dosage: 3 COMBINATION PACK 200 + 2, QD
     Route: 067
     Dates: start: 20240702, end: 20240704
  30. NYSTATIN [Concomitant]
     Active Substance: NYSTATIN
     Indication: Product used for unknown indication
     Dosage: 10000 UNK, QD (SUSPENSION)
     Route: 048
     Dates: start: 20240710, end: 20240717
  31. ZYRTEC-D [Concomitant]
     Active Substance: CETIRIZINE HYDROCHLORIDE\PSEUDOEPHEDRINE HYDROCHLORIDE
     Indication: Product used for unknown indication
     Dosage: 5-120 MG QD
     Route: 048
     Dates: start: 20240622, end: 20240703
  32. AMOXICILLIN AND CLAVULANATE POTASSIUM [Concomitant]
     Active Substance: AMOXICILLIN\CLAVULANATE POTASSIUM
     Indication: Product used for unknown indication
     Dosage: 200 MILLIGRAM, BID
     Route: 048
     Dates: start: 20240622, end: 20240701

REACTIONS (8)
  - Confusional state [Not Recovered/Not Resolved]
  - Hormone level abnormal [Not Recovered/Not Resolved]
  - Diabetes insipidus [Unknown]
  - Concomitant disease aggravated [Unknown]
  - Pre-eclampsia [Not Recovered/Not Resolved]
  - Maternal exposure during pregnancy [Recovered/Resolved]
  - Delivery [Recovered/Resolved]
  - Therapeutic product effect variable [Recovered/Resolved]

NARRATIVE: CASE EVENT DATE: 20240101
